FAERS Safety Report 6130857-8 (Version None)
Quarter: 2009Q1

REPORT INFORMATION
  Report Type: 
  Country: None (occurrence: None)
  Receive Date: 20090325
  Receipt Date: 20090320
  Transmission Date: 20090719
  Serious: Yes (Life-Threatening, Hospitalization)
  Sender: FDA-Public Use
  Company Number: FR-BRISTOL-MYERS SQUIBB COMPANY-14557417

PATIENT
  Age: 63 Year
  Sex: Female

DRUGS (9)
  1. GLUCOPHAGE [Suspect]
     Indication: TYPE 2 DIABETES MELLITUS
     Route: 048
     Dates: end: 20080729
  2. VASTEN TABS 20 MG [Concomitant]
     Dosage: 1 DOSAGE FORM = 0.5 DOSAGE FORM
  3. ATACAND [Concomitant]
     Dosage: 1 DOSAGE FORM = 1.5 DOSAGE FORM
  4. DILTIAZEM HCL [Concomitant]
  5. XANAX [Concomitant]
  6. LAROXYL [Concomitant]
     Dosage: 1 DOSAGE FORM = 17GTT; AT NIGHT.
  7. DI-ANTALVIC [Concomitant]
  8. TRIMEBUTINE [Concomitant]
  9. MEGAMAG [Concomitant]

REACTIONS (2)
  - LACTIC ACIDOSIS [None]
  - RENAL FAILURE ACUTE [None]
